FAERS Safety Report 6095569-8 (Version None)
Quarter: 2009Q1

REPORT INFORMATION
  Report Type: 
  Country: None (occurrence: None)
  Receive Date: 20090227
  Receipt Date: 20080428
  Transmission Date: 20090719
  Serious: No
  Sender: FDA-Public Use
  Company Number: A0725084A

PATIENT
  Age: 56 Year
  Sex: Female

DRUGS (9)
  1. LAMICTAL [Suspect]
     Indication: EPILEPSY
     Dosage: 100MG PER DAY
     Route: 048
     Dates: start: 20080301
  2. MEDROXYPROGESTERONE [Concomitant]
  3. LEXAPRO [Concomitant]
  4. ATIVAN [Concomitant]
  5. ESTRADIOL [Concomitant]
  6. SOMA [Concomitant]
  7. NEURONTIN [Concomitant]
  8. ALPRAZOLAM [Concomitant]
  9. LORCET-HD [Concomitant]

REACTIONS (4)
  - BALANCE DISORDER [None]
  - DYSARTHRIA [None]
  - EYE ROLLING [None]
  - TREMOR [None]
